FAERS Safety Report 7115216-3 (Version None)
Quarter: 2010Q4

REPORT INFORMATION
  Report Type: 
  Country: None (occurrence: None)
  Receive Date: 20101122
  Receipt Date: 20101109
  Transmission Date: 20110411
  Serious: Yes (Other)
  Sender: FDA-Public Use
  Company Number: PHFR2010GB05316

PATIENT
  Sex: Female

DRUGS (1)
  1. ACLASTA [Suspect]
     Dosage: 5 MG IN 100 MLS, OVER HALF HOUR

REACTIONS (3)
  - ASTHENIA [None]
  - MOVEMENT DISORDER [None]
  - SENSORY DISTURBANCE [None]
